FAERS Safety Report 17241928 (Version 1)
Quarter: 2019Q4

REPORT INFORMATION
  Report Type: Spontaneous
  Country: US (occurrence: US)
  Receive Date: 20191212
  Receipt Date: 20191212
  Transmission Date: 20200122
  Serious: No
  Sender: FDA-Public Use
  Company Number: None

PATIENT
  Age: 58 Year
  Sex: Male

DRUGS (1)
  1. TREMFYA [Suspect]
     Active Substance: GUSELKUMAB
     Indication: PSORIASIS
     Dosage: ?          OTHER FREQUENCY:EVERY6WEEKS ;?
     Route: 058
     Dates: start: 201911

REACTIONS (2)
  - Therapy cessation [None]
  - Liver function test increased [None]

NARRATIVE: CASE EVENT DATE: 201911
